FAERS Safety Report 6704577-2 (Version None)
Quarter: 2010Q2

REPORT INFORMATION
  Report Type: 
  Country: None (occurrence: None)
  Receive Date: 20100430
  Receipt Date: 20100428
  Transmission Date: 20101027
  Serious: Yes (Death, Hospitalization)
  Sender: FDA-Public Use
  Company Number: PHHO2010US03553

PATIENT
  Sex: Female
  Weight: 58.05 kg

DRUGS (13)
  1. AFINITOR [Suspect]
     Indication: GLIOBLASTOMA MULTIFORME
     Dosage: 5 MG, QD
     Route: 048
     Dates: start: 20100224, end: 20100228
  2. AVASTIN COMP-AVA+ [Suspect]
     Indication: GLIOBLASTOMA MULTIFORME
     Dosage: 10 MG/KG, UNK
     Route: 042
     Dates: start: 20090922, end: 20100223
  3. TEMOZOLOMIDE [Suspect]
     Indication: GLIOBLASTOMA MULTIFORME
     Dosage: UNK
     Dates: start: 20090922
  4. LISINOPRIL [Concomitant]
     Dosage: UNK
     Dates: start: 20100209
  5. LOVENOX [Concomitant]
     Dosage: UNK
     Dates: start: 20100216
  6. COUMADIN [Concomitant]
  7. DILANTIN [Concomitant]
  8. MEGACE [Concomitant]
  9. DECADRON [Concomitant]
  10. CALCIUM [Concomitant]
  11. FAMOTIDINE [Concomitant]
  12. ONDANSETRON [Concomitant]
  13. PROMETHAZINE [Concomitant]

REACTIONS (10)
  - BRAIN HERNIATION [None]
  - CEREBRAL HAEMORRHAGE [None]
  - ENDOTRACHEAL INTUBATION [None]
  - EXTUBATION [None]
  - GLIOBLASTOMA MULTIFORME [None]
  - HEADACHE [None]
  - MENTAL STATUS CHANGES [None]
  - PUPILS UNEQUAL [None]
  - SUBDURAL HAEMATOMA [None]
  - UNRESPONSIVE TO STIMULI [None]
